FAERS Safety Report 17222731 (Version 1)
Quarter: 2020Q1

REPORT INFORMATION
  Report Type: Spontaneous
  Country: JP (occurrence: JP)
  Receive Date: 20200102
  Receipt Date: 20200102
  Transmission Date: 20200409
  Serious: Yes (Hospitalization)
  Sender: FDA-Public Use
  Company Number: JP-ROCHE-2461236

PATIENT
  Age: 86 Year
  Sex: Female
  Weight: 47 kg

DRUGS (8)
  1. ELDECALCITOL [Suspect]
     Active Substance: ELDECALCITOL
     Indication: OSTEOPOROSIS
     Route: 048
     Dates: start: 20190405
  2. IFENPRODIL TARTRATE [Concomitant]
     Active Substance: IFENPRODIL TARTRATE
  3. BISOPROLOL [Concomitant]
     Active Substance: BISOPROLOL
  4. CILNIDIPINE [Concomitant]
     Active Substance: CILNIDIPINE
  5. BONVIVA [Suspect]
     Active Substance: IBANDRONATE SODIUM
     Indication: OSTEOPOROSIS
     Route: 042
     Dates: start: 20190405
  6. LIXIANA OD [Concomitant]
     Active Substance: EDOXABAN TOSYLATE
  7. ALPRAZOLAM. [Concomitant]
     Active Substance: ALPRAZOLAM
  8. ZOLPIDEM TARTRATE. [Concomitant]
     Active Substance: ZOLPIDEM TARTRATE

REACTIONS (2)
  - Hypercalcaemia [Recovering/Resolving]
  - Acute kidney injury [Recovering/Resolving]

NARRATIVE: CASE EVENT DATE: 20190808
